FAERS Safety Report 12596671 (Version 5)
Quarter: 2017Q2

REPORT INFORMATION
  Report Type: Report from Study
  Country: DE (occurrence: DE)
  Receive Date: 20160727
  Receipt Date: 20170425
  Transmission Date: 20170830
  Serious: Yes (Other)
  Sender: FDA-Public Use
  Company Number: DE-BRISTOL-MYERS SQUIBB COMPANY-BMS-2016-060951

PATIENT
  Age: 77 Year
  Sex: Male
  Weight: 68 kg

DRUGS (3)
  1. CLEXANE [Suspect]
     Active Substance: ENOXAPARIN SODIUM
     Indication: PRODUCT USED FOR UNKNOWN INDICATION
     Route: 065
  2. APIXABAN [Suspect]
     Active Substance: APIXABAN
     Indication: PRODUCT USED FOR UNKNOWN INDICATION
     Dosage: 5 MG, BID
     Route: 048
  3. APIXABAN [Suspect]
     Active Substance: APIXABAN
     Indication: EMBOLISM VENOUS
     Dosage: 10 MG, BID
     Route: 048
     Dates: start: 20160415, end: 20160912

REACTIONS (5)
  - Post procedural haemorrhage [Unknown]
  - Haemorrhage [Unknown]
  - Fall [Unknown]
  - Contraindicated product administered [Unknown]
  - Off label use [Unknown]

NARRATIVE: CASE EVENT DATE: 20160515
